FAERS Safety Report 7351975-2 (Version None)
Quarter: 2011Q1

REPORT INFORMATION
  Report Type: 
  Country: None (occurrence: None)
  Receive Date: 20110315
  Receipt Date: 20110309
  Transmission Date: 20110831
  Serious: No
  Sender: FDA-Public Use
  Company Number: US-PFIZER INC-2011052295

PATIENT
  Sex: Female
  Weight: 68 kg

DRUGS (1)
  1. PREMPRO [Suspect]
     Indication: MENOPAUSAL SYMPTOMS
     Dosage: 03/1.5 MG, DAILY
     Route: 048
     Dates: start: 20110225, end: 20110303

REACTIONS (1)
  - HEADACHE [None]
